FAERS Safety Report 5596933-3 (Version None)
Quarter: 2007Q4

REPORT INFORMATION
  Report Type: 
  Country: None (occurrence: None)
  Receive Date: 20071220
  Receipt Date: 20070911
  Transmission Date: 20080405
  Serious: Yes (Other)
  Sender: FDA-Public Use
  Company Number: A03200705506

PATIENT
  Age: 78 Year
  Sex: Female

DRUGS (6)
  1. AMBIEN [Suspect]
     Indication: INSOMNIA
     Dosage: ORAL
     Route: 048
     Dates: start: 20070908, end: 20070901
  2. AMBIEN [Suspect]
     Indication: RESTLESS LEGS SYNDROME
     Dosage: ORAL
     Route: 048
     Dates: start: 20070908, end: 20070901
  3. XANAX [Suspect]
     Indication: INSOMNIA
     Dosage: 0.5 MG BID - ORAL
     Route: 048
     Dates: start: 20070910
  4. XANAX [Suspect]
     Indication: RESTLESS LEGS SYNDROME
     Dosage: 0.5 MG BID - ORAL
     Route: 048
     Dates: start: 20070910
  5. VITAMIN D [Concomitant]
  6. SERTRALINE HYDROCHLORIDE [Concomitant]

REACTIONS (5)
  - ABNORMAL DREAMS [None]
  - DRUG INEFFECTIVE [None]
  - HALLUCINATION [None]
  - SUICIDAL IDEATION [None]
  - TREMOR [None]
